FAERS Safety Report 11214512 (Version 1)
Quarter: 2015Q2

REPORT INFORMATION
  Report Type: Spontaneous
  Country: CA (occurrence: CA)
  Receive Date: 20150624
  Receipt Date: 20150624
  Transmission Date: 20150821
  Serious: Yes (Other)
  Sender: FDA-Public Use
  Company Number: CA-ROCHE-1598005

PATIENT
  Age: 61 Year
  Sex: Female

DRUGS (1)
  1. XOLAIR [Suspect]
     Active Substance: OMALIZUMAB
     Indication: ASTHMA
     Route: 058
     Dates: start: 20130826

REACTIONS (8)
  - Malaise [Unknown]
  - Forced vital capacity decreased [Unknown]
  - Expiratory reserve volume decreased [Unknown]
  - Hypoventilation [Not Recovered/Not Resolved]
  - Lower respiratory tract infection [Unknown]
  - Forced expiratory volume decreased [Unknown]
  - Dizziness [Unknown]
  - Obstructive airways disorder [Unknown]

NARRATIVE: CASE EVENT DATE: 201406
